FAERS Safety Report 15085118 (Version 1)
Quarter: 2018Q3

REPORT INFORMATION
  Report Type: Spontaneous
  Country: US (occurrence: US)
  Receive Date: 20180628
  Receipt Date: 20180628
  Transmission Date: 20181010
  Serious: Yes (Other)
  Sender: FDA-Public Use
  Company Number: US-THE MENTHOLATUM COMPANY-2050155

PATIENT
  Age: 65 Year
  Sex: Male
  Weight: 94.55 kg

DRUGS (1)
  1. EQUATE MENTHOL PAIN RELIEVING [Suspect]
     Active Substance: MENTHOL
     Route: 061

REACTIONS (2)
  - Thermal burn [Unknown]
  - Blister [Unknown]
